FAERS Safety Report 9152752 (Version 1)
Quarter: 2013Q1

REPORT INFORMATION
  Report Type: Spontaneous
  Country: US (occurrence: US)
  Receive Date: 20130308
  Receipt Date: 20130308
  Transmission Date: 20140127
  Serious: Yes (Hospitalization, Other)
  Sender: FDA-Public Use
  Company Number: US-AMGEN-USASP2013013555

PATIENT
  Age: 32 Year
  Sex: Male

DRUGS (1)
  1. ARANESP [Suspect]
     Indication: NEPHROGENIC ANAEMIA
     Dosage: 400 MUG, QMO

REACTIONS (3)
  - Therapeutic response decreased [Unknown]
  - Anaemia [Unknown]
  - Abdominal pain [Unknown]
